FAERS Safety Report 5849945-6 (Version None)
Quarter: 2008Q3

REPORT INFORMATION
  Report Type: 
  Country: None (occurrence: None)
  Receive Date: 20080815
  Receipt Date: 20080807
  Transmission Date: 20090109
  Serious: Yes (Hospitalization)
  Sender: FDA-Public Use
  Company Number: 2008AL005874

PATIENT
  Age: 68 Year
  Sex: Male
  Weight: 76.2043 kg

DRUGS (1)
  1. DIGOXIN [Suspect]
     Dosage: 0.25MG DAILY PO
     Route: 048

REACTIONS (7)
  - ASTHENIA [None]
  - DYSPNOEA [None]
  - FATIGUE [None]
  - GAIT DISTURBANCE [None]
  - MALAISE [None]
  - NAUSEA [None]
  - VOMITING [None]
